FAERS Safety Report 24583593 (Version 1)
Quarter: 2024Q4

REPORT INFORMATION
  Report Type: Spontaneous
  Country: MD (occurrence: MD)
  Receive Date: 20241106
  Receipt Date: 20241106
  Transmission Date: 20250115
  Serious: Yes (Other)
  Sender: STRIDES
  Company Number: MD-STRIDES ARCOLAB LIMITED-2024SP014239

PATIENT
  Sex: Female

DRUGS (2)
  1. IBUPROFEN [Suspect]
     Active Substance: IBUPROFEN
     Indication: Product used for unknown indication
     Dosage: UNK (PATIENT^S MOTHER RECEIVED 400 MG EVERY 12 HOURS)
     Route: 064
  2. IMMUNE GLOBULIN NOS [Suspect]
     Active Substance: IMMUNE GLOBULIN NOS
     Indication: Product used for unknown indication
     Dosage: UNK
     Route: 064

REACTIONS (2)
  - Low birth weight baby [Unknown]
  - Foetal exposure during pregnancy [Unknown]
